FAERS Safety Report 6528802-6 (Version None)
Quarter: 2010Q1

REPORT INFORMATION
  Report Type: 
  Country: None (occurrence: None)
  Receive Date: 20100106
  Receipt Date: 20091228
  Transmission Date: 20100710
  Serious: Yes (Hospitalization)
  Sender: FDA-Public Use
  Company Number: JP-AMGEN-US368262

PATIENT
  Sex: Female
  Weight: 51 kg

DRUGS (5)
  1. ENBREL [Suspect]
     Indication: RHEUMATOID ARTHRITIS
     Route: 058
     Dates: start: 20060608, end: 20090714
  2. INFLIXIMAB [Suspect]
     Dosage: UNSPECIFIED
     Route: 065
     Dates: start: 20040101
  3. RHEUMATREX [Suspect]
     Indication: RHEUMATOID ARTHRITIS
     Dosage: UNSPECIFIED
     Route: 048
     Dates: start: 20030101, end: 20090717
  4. ACTONEL [Concomitant]
     Indication: OSTEOPOROSIS PROPHYLAXIS
     Route: 048
  5. FOLIC ACID [Concomitant]
     Route: 048
     Dates: end: 20090717

REACTIONS (1)
  - LYMPHOMA [None]
